FAERS Safety Report 16097667 (Version 3)
Quarter: 2019Q2

REPORT INFORMATION
  Report Type: Spontaneous
  Country: FR (occurrence: FR)
  Receive Date: 20190320
  Receipt Date: 20190417
  Transmission Date: 20190711
  Serious: Yes (Hospitalization)
  Sender: FDA-Public Use
  Company Number: FR-ANIPHARMA-2019-FR-000043

PATIENT
  Age: 64 Year
  Sex: Female
  Weight: 114 kg

DRUGS (15)
  1. ACTISKENAN [Suspect]
     Active Substance: MORPHINE SULFATE
     Dosage: 5 MG TID
     Route: 048
  2. AMLOR [Suspect]
     Active Substance: AMLODIPINE BESYLATE
     Dosage: 5 MG DAILY
     Route: 048
     Dates: end: 201704
  3. PRAZEPAM [Suspect]
     Active Substance: PRAZEPAM
     Dosage: 10 MG BID
     Route: 048
  4. CANDESARTAN CILEXETIL AND HYDROCHLOROTHIAZIDE [Suspect]
     Active Substance: CANDESARTAN CILEXETIL\HYDROCHLOROTHIAZIDE
     Indication: HYPERTENSION
     Dosage: 16 MG/12.5 MG, DAILY
     Route: 048
     Dates: end: 201704
  5. LIPANTHYL [Suspect]
     Active Substance: FENOFIBRATE
     Dosage: 160 MG DAILY
     Route: 048
  6. NOCTAMIDE [Suspect]
     Active Substance: LORMETAZEPAM
     Dosage: 2 DF HS
     Route: 048
  7. LASILIX [Suspect]
     Active Substance: FUROSEMIDE
     Dosage: 40 MG DAILY / DOSE TEXT: INCREASED
     Route: 048
  8. LEVOTHYROXINE. [Suspect]
     Active Substance: LEVOTHYROXINE
     Dosage: 50 UG DAILY
     Route: 048
  9. EFFERALGAN [Suspect]
     Active Substance: ACETAMINOPHEN
     Dosage: DOSE TEXT: 1 TO 4/DAY AS NEEDED
     Route: 048
  10. CELEBREX [Suspect]
     Active Substance: CELECOXIB
     Dosage: 200 MG DAILY
     Route: 051
  11. SPASFON-LYOC [Suspect]
     Active Substance: PHLOROGLUCINOL
     Dosage: 80 MG QID
     Route: 048
  12. DEPAMIDE [Suspect]
     Active Substance: VALPROMIDE
     Dosage: 300 MG TID
     Route: 048
  13. INEXIUM [Suspect]
     Active Substance: ESOMEPRAZOLE
     Dosage: 40 MG BID / 40 MG DAILY
  14. VENLAFAXINE [Suspect]
     Active Substance: VENLAFAXINE HYDROCHLORIDE
     Dosage: 150 MG QAM
     Route: 048
  15. BISOPROLOL HEMIFUMARATE [Suspect]
     Active Substance: BISOPROLOL FUMARATE
     Dosage: 5 MG DAILY
     Route: 048

REACTIONS (2)
  - Oedema peripheral [Recovered/Resolved]
  - Condition aggravated [Unknown]

NARRATIVE: CASE EVENT DATE: 20170422
